FAERS Safety Report 9835541 (Version 2)
Quarter: 2014Q3

REPORT INFORMATION
  Report Type: Spontaneous
  Country: US (occurrence: US)
  Receive Date: 20140122
  Receipt Date: 20140825
  Transmission Date: 20150326
  Serious: Yes (Other)
  Sender: FDA-Public Use
  Company Number: US-009507513-1401USA007545

PATIENT
  Sex: Female

DRUGS (1)
  1. NUVARING [Suspect]
     Active Substance: ETHINYL ESTRADIOL\ETONOGESTREL
     Indication: CONTRACEPTION
     Dosage: INSERT 1 RING VAGINALLY FOR 3 WEEKS THEN REMOVE FOR 1 WK AND REPEAT CYCLE.
     Route: 067
     Dates: start: 20091102, end: 20110603

REACTIONS (3)
  - Menstruation irregular [Not Recovered/Not Resolved]
  - Pulmonary embolism [Unknown]
  - Menorrhagia [Unknown]

NARRATIVE: CASE EVENT DATE: 20110709
